FAERS Safety Report 21544568 (Version 1)
Quarter: 2022Q4

REPORT INFORMATION
  Report Type: Spontaneous
  Country: SA (occurrence: None)
  Receive Date: 20221102
  Receipt Date: 20221102
  Transmission Date: 20230112
  Serious: Yes (Other)
  Sender: FDA-Public Use
  Company Number: SA-Eisai Medical Research-EC-2022-126690

PATIENT
  Age: 19 Year
  Sex: Female

DRUGS (8)
  1. PERAMPANEL [Interacting]
     Active Substance: PERAMPANEL
     Indication: Status epilepticus
     Route: 048
  2. PHENYTOIN [Interacting]
     Active Substance: PHENYTOIN
     Indication: Status epilepticus
     Route: 065
  3. LACOSAMIDE [Suspect]
     Active Substance: LACOSAMIDE
     Indication: Status epilepticus
     Route: 065
  4. LACOSAMIDE [Suspect]
     Active Substance: LACOSAMIDE
     Dosage: DOSE REDUCED (DOSE AND FREQUENCY UNKNOWN)
     Route: 065
  5. LEVETIRACETAM [Concomitant]
     Active Substance: LEVETIRACETAM
     Indication: Status epilepticus
     Dosage: DOSE AND FREQUENCY UNKNOWN
     Route: 065
  6. LORAZEPAM [Concomitant]
     Active Substance: LORAZEPAM
     Indication: Status epilepticus
     Dosage: DOSE AND FREQUENCY UNKNOWN
     Route: 065
  7. PROPOFOL [Concomitant]
     Active Substance: PROPOFOL
     Indication: Status epilepticus
     Dosage: DOSE AND FREQUENCY UNKNOWN
     Route: 065
  8. PHENOBARBITAL [Concomitant]
     Active Substance: PHENOBARBITAL
     Indication: Status epilepticus
     Dosage: ONE DOSE - UNIT DOSE UNKNOWN
     Route: 065

REACTIONS (2)
  - Tachycardia [Recovered/Resolved]
  - Drug interaction [Recovered/Resolved]
